FAERS Safety Report 5363164-1 (Version None)
Quarter: 2007Q2

REPORT INFORMATION
  Report Type: 
  Country: None (occurrence: None)
  Receive Date: 20070620
  Receipt Date: 20070612
  Transmission Date: 20071010
  Serious: Yes (Hospitalization, Other)
  Sender: FDA-Public Use
  Company Number: PHEH2007US05036

PATIENT
  Age: 34 Year
  Sex: Female

DRUGS (1)
  1. ZELNORM [Suspect]
     Indication: IRRITABLE BOWEL SYNDROME
     Dosage: 6 MG, BID
     Route: 048
     Dates: start: 20020101, end: 20070413

REACTIONS (11)
  - ASTHENIA [None]
  - CARDIAC PACEMAKER INSERTION [None]
  - DIZZINESS [None]
  - DYSPNOEA [None]
  - FATIGUE [None]
  - ORTHOSTATIC HYPOTENSION [None]
  - SENSATION OF HEAVINESS [None]
  - SPEECH DISORDER [None]
  - SYNCOPE [None]
  - TILT TABLE TEST [None]
  - WALKING DISABILITY [None]
